FAERS Safety Report 23333100 (Version 1)
Quarter: 2023Q4

REPORT INFORMATION
  Report Type: Spontaneous
  Country: US (occurrence: US)
  Receive Date: 20231222
  Receipt Date: 20231222
  Transmission Date: 20240109
  Serious: No
  Sender: FDA-Public Use
  Company Number: US-CTI BIOPHARMA-2023US04102

PATIENT

DRUGS (2)
  1. VONJO [Suspect]
     Active Substance: PACRITINIB
     Indication: Product used for unknown indication
     Dosage: UNK
  2. JAKAFI [Concomitant]
     Active Substance: RUXOLITINIB
     Dosage: 5 MG, BID

REACTIONS (1)
  - Fatigue [Not Recovered/Not Resolved]
